FAERS Safety Report 6169578-4 (Version None)
Quarter: 2009Q2

REPORT INFORMATION
  Report Type: 
  Country: None (occurrence: None)
  Receive Date: 20090428
  Receipt Date: 20090421
  Transmission Date: 20091009
  Serious: Yes (Hospitalization)
  Sender: FDA-Public Use
  Company Number: US-JNJFOC-20090405489

PATIENT
  Sex: Female
  Weight: 31.5 kg

DRUGS (11)
  1. INFLIXMAB [Suspect]
     Route: 042
  2. INFLIXMAB [Suspect]
     Route: 042
  3. INFLIXMAB [Suspect]
     Route: 042
  4. INFLIXMAB [Suspect]
     Route: 042
  5. INFLIXMAB [Suspect]
     Route: 042
  6. INFLIXMAB [Suspect]
     Indication: INFLAMMATORY BOWEL DISEASE
     Route: 042
  7. HUMIRA [Suspect]
     Dosage: MOST RECENT ADMINISTRATION DATE
  8. HUMIRA [Suspect]
     Indication: INFLAMMATORY BOWEL DISEASE
  9. PREDNISONE TAB [Suspect]
     Indication: DRUG USE FOR UNKNOWN INDICATION
  10. 5-ASA [Concomitant]
     Route: 048
  11. ANTIBIOTICS [Concomitant]
     Indication: INFLAMMATORY BOWEL DISEASE

REACTIONS (2)
  - CROHN'S DISEASE [None]
  - GASTROENTERITIS CRYPTOSPORIDIAL [None]
